FAERS Safety Report 5203859-3 (Version None)
Quarter: 2007Q1

REPORT INFORMATION
  Report Type: 
  Country: None (occurrence: None)
  Receive Date: 20070110
  Receipt Date: 20070102
  Transmission Date: 20070707
  Serious: No
  Sender: FDA-Public Use
  Company Number: DE-BAXTER-2006BH015255

PATIENT
  Sex: Male

DRUGS (3)
  1. FEIBA VH IMMUNO [Suspect]
     Indication: HAEMOPHILIA B WITH ANTI FACTOR IX
     Dosage: DOSE UNIT:UNKNOWN
     Route: 065
  2. FEIBA VH IMMUNO [Suspect]
     Dosage: DOSE UNIT:UNKNOWN
     Route: 065
  3. FEIBA VH IMMUNO [Suspect]
     Dosage: DOSE UNIT:UNKNOWN
     Route: 065

REACTIONS (1)
  - OEDEMA [None]
